FAERS Safety Report 8986408 (Version 1)
Quarter: 2012Q4

REPORT INFORMATION
  Report Type: Report from Study
  Country: CA (occurrence: CA)
  Receive Date: 20121227
  Receipt Date: 20121227
  Transmission Date: 20130627
  Serious: Yes (Hospitalization, Other)
  Sender: FDA-Public Use
  Company Number: CA-JNJFOC-20121209889

PATIENT
  Age: 36 None
  Sex: Female

DRUGS (1)
  1. REMICADE [Suspect]
     Indication: CROHN^S DISEASE
     Route: 042

REACTIONS (10)
  - Syncope [Unknown]
  - Throat tightness [Unknown]
  - Hypotension [Unknown]
  - Hypoaesthesia oral [Unknown]
  - Urticaria [Unknown]
  - Hypersensitivity [Unknown]
  - Blood test abnormal [Unknown]
  - Diarrhoea [Unknown]
  - Vomiting [Unknown]
  - Malaise [Unknown]
